FAERS Safety Report 9150156 (Version 1)
Quarter: 2013Q1

REPORT INFORMATION
  Report Type: Spontaneous
  Country: DK (occurrence: None)
  Receive Date: 20130129
  Receipt Date: 20130129
  Transmission Date: 20140127
  Serious: Yes (Other)
  Sender: FDA-Public Use
  Company Number: 2013MA000512

PATIENT
  Age: 61 Year
  Sex: Female

DRUGS (6)
  1. ASPIRIN\BUTALBITAL\CAFFEINE [Suspect]
     Route: 048
  2. AMLODIPINE (AMLODIPINE) [Suspect]
  3. SIMVASTATIN (SIMVASTATIN) [Suspect]
     Route: 048
     Dates: start: 20120310
  4. ATORVASTATIN (ATORVASTATIN) [Suspect]
     Route: 048
     Dates: start: 20120710, end: 20120731
  5. DIPYRIDAMOLE [Suspect]
  6. PERINDOPRIL [Suspect]

REACTIONS (6)
  - Abdominal pain [None]
  - Myalgia [None]
  - Muscle contractions involuntary [None]
  - Renal disorder [None]
  - Fear [None]
  - Pain [None]
